FAERS Safety Report 23808550 (Version 1)
Quarter: 2024Q2

REPORT INFORMATION
  Report Type: Other
  Country: US (occurrence: US)
  Receive Date: 20240502
  Receipt Date: 20240502
  Transmission Date: 20240715
  Serious: Yes (Hospitalization, Other)
  Sender: FDA-Public Use
  Company Number: US-Innogenix, LLC-2156423

PATIENT
  Age: 42 Year
  Sex: Male

DRUGS (1)
  1. HALOPERIDOL [Suspect]
     Active Substance: HALOPERIDOL
     Indication: Schizophrenia
     Route: 065

REACTIONS (7)
  - Encephalopathy [Recovered/Resolved]
  - Overdose [Unknown]
  - Chest pain [Recovered/Resolved]
  - Sinus tachycardia [Recovered/Resolved]
  - Electrocardiogram QT prolonged [Recovered/Resolved]
  - Electrocardiogram ST segment elevation [Recovered/Resolved]
  - Pericarditis [Recovered/Resolved]
